FAERS Safety Report 7337387-6 (Version None)
Quarter: 2011Q1

REPORT INFORMATION
  Report Type: 
  Country: None (occurrence: None)
  Receive Date: 20110308
  Receipt Date: 20110224
  Transmission Date: 20110831
  Serious: Yes (Other)
  Sender: FDA-Public Use
  Company Number: US-MYLANLABS-2011S1003680

PATIENT
  Sex: Female

DRUGS (4)
  1. ULTIVA [Suspect]
     Indication: MATERNAL DRUGS AFFECTING FOETUS
     Route: 064
  2. PROPOFOL [Concomitant]
     Indication: ANAESTHESIA PROCEDURE
     Route: 064
  3. SEVOFLURANE [Suspect]
     Indication: MATERNAL DRUGS AFFECTING FOETUS
     Route: 064
  4. GLYCERYL TRINITRATE [Suspect]
     Indication: MATERNAL DRUGS AFFECTING FOETUS

REACTIONS (2)
  - FOETAL HEART RATE DECREASED [None]
  - DRUG EXPOSURE DURING PREGNANCY [None]
